FAERS Safety Report 12356745 (Version 1)
Quarter: 2016Q2

REPORT INFORMATION
  Report Type: Spontaneous
  Country: US (occurrence: US)
  Receive Date: 20160511
  Receipt Date: 20160511
  Transmission Date: 20160815
  Serious: No
  Sender: FDA-Public Use
  Company Number: US-B.I. PHARMACEUTICALS,INC./RIDGEFIELD-2016-BI-27390BP

PATIENT
  Sex: Female

DRUGS (3)
  1. BROVANA [Suspect]
     Active Substance: ARFORMOTEROL TARTRATE
     Indication: EMPHYSEMA
     Dosage: FORMULATION:NEBULIZER SOLUTION; ROUTE:RESPIRATORY
     Route: 050
     Dates: start: 2015
  2. FORADIL [Suspect]
     Active Substance: FORMOTEROL FUMARATE
     Indication: PRODUCT USED FOR UNKNOWN INDICATION
     Route: 065
     Dates: end: 2016
  3. SPIRIVA [Suspect]
     Active Substance: TIOTROPIUM BROMIDE MONOHYDRATE
     Indication: PRODUCT USED FOR UNKNOWN INDICATION
     Route: 065
     Dates: start: 2015

REACTIONS (8)
  - Productive cough [Recovered/Resolved]
  - Incorrect product storage [Recovered/Resolved]
  - Dysphonia [Recovered/Resolved]
  - Candida infection [Unknown]
  - Emphysema [Not Recovered/Not Resolved]
  - Dyspnoea [Not Recovered/Not Resolved]
  - Labelled drug-drug interaction medication error [Recovered/Resolved]
  - Drug ineffective [Recovered/Resolved]
